FAERS Safety Report 18326414 (Version 1)
Quarter: 2020Q3

REPORT INFORMATION
  Report Type: Spontaneous
  Country: NL (occurrence: NL)
  Receive Date: 20200929
  Receipt Date: 20200929
  Transmission Date: 20201103
  Serious: Yes (Other)
  Sender: FDA-Public Use
  Company Number: NL-MYLANLABS-2020M1082077

PATIENT
  Sex: Female
  Weight: 84 kg

DRUGS (5)
  1. PANTOPRAZOL                        /01263201/ [Concomitant]
     Active Substance: PANTOPRAZOLE
     Dosage: MAAGSAPRESISTENTE TABLET, 20 MG (MILLIGRAM)
  2. PARACETAMOL [Concomitant]
     Active Substance: ACETAMINOPHEN
     Dosage: TABLET, 1000 MG (MILLIGRAM)
  3. ALENDRONATE [Suspect]
     Active Substance: ALENDRONATE SODIUM
     Indication: OSTEOPOROSIS
     Dosage: 1 X PER WEEK
     Dates: start: 202001, end: 20200612
  4. TRAMADOL. [Concomitant]
     Active Substance: TRAMADOL
     Dosage: CAPSULE MET GEREGULEERDE AFGIFTE, 50 MG (MILLIGRAM)
  5. IBUPROFEN. [Concomitant]
     Active Substance: IBUPROFEN
     Dosage: TABLET, 400 MG (MILLIGRAM)

REACTIONS (7)
  - Ocular icterus [Recovered/Resolved]
  - Vision blurred [Recovering/Resolving]
  - Halo vision [Recovering/Resolving]
  - Eye haemorrhage [Recovered/Resolved]
  - Visual impairment [Recovering/Resolving]
  - Photophobia [Recovering/Resolving]
  - Photopsia [Recovering/Resolving]
